FAERS Safety Report 5693709-3 (Version None)
Quarter: 2008Q2

REPORT INFORMATION
  Report Type: 
  Country: None (occurrence: None)
  Receive Date: 20080403
  Receipt Date: 20080327
  Transmission Date: 20081010
  Serious: Yes (Other)
  Sender: FDA-Public Use
  Company Number: PHHY2008CA04096

PATIENT
  Age: 70 Year
  Sex: Male

DRUGS (3)
  1. DIOVAN [Suspect]
     Dosage: 80 MG
     Route: 048
  2. DIGOXIN [Concomitant]
  3. DIURETICS [Concomitant]

REACTIONS (2)
  - PAIN [None]
  - SWELLING [None]
